FAERS Safety Report 5819503-8 (Version None)
Quarter: 2008Q3

REPORT INFORMATION
  Report Type: 
  Country: None (occurrence: None)
  Receive Date: 20080723
  Receipt Date: 20080718
  Transmission Date: 20090109
  Serious: Yes (Life-Threatening, Hospitalization, Other)
  Sender: FDA-Public Use
  Company Number: FR-ABBOTT-08P-056-0464637-00

PATIENT
  Age: 81 Year
  Sex: Male

DRUGS (1)
  1. ENANTONE LP 11.25 MG PREP INJECTION [Suspect]
     Indication: PROSTATE CANCER METASTATIC
     Route: 050

REACTIONS (1)
  - ASTHMATIC CRISIS [None]
